FAERS Safety Report 8361915-5 (Version None)
Quarter: 2012Q2

REPORT INFORMATION
  Report Type: 
  Country: None (occurrence: None)
  Receive Date: 20120515
  Receipt Date: 20100708
  Transmission Date: 20120825
  Serious: No
  Sender: FDA-Public Use
  Company Number: US-TEVA-2010003873

PATIENT
  Sex: Female
  Weight: 78.542 kg

DRUGS (6)
  1. NUVIGIL [Suspect]
     Indication: NARCOLEPSY
     Dosage: 300 MILLIGRAM;
     Route: 048
     Dates: start: 20100623, end: 20100630
  2. FUROSEMIDE [Concomitant]
     Dates: start: 20070101
  3. METOPROLOL TARTRATE [Concomitant]
     Dates: start: 20000101
  4. CRESTOR [Concomitant]
  5. POTASSIUM CHLORIDE [Concomitant]
     Dates: start: 20070101
  6. PROVIGIL [Concomitant]
     Indication: NARCOLEPSY
     Dosage: 400 MILLIGRAM;
     Route: 048
     Dates: start: 19800101

REACTIONS (1)
  - DRUG INEFFECTIVE [None]
